FAERS Safety Report 4738658-X (Version None)
Quarter: 2005Q3

REPORT INFORMATION
  Report Type: 
  Country: None (occurrence: None)
  Receive Date: 20050808
  Receipt Date: 20050808
  Transmission Date: 20060218
  Serious: Yes (Hospitalization)
  Sender: FDA-Public Use
  Company Number: None

PATIENT
  Age: 21 Year
  Sex: Female
  Weight: 58.9676 kg

DRUGS (1)
  1. ZELNORM [Suspect]
     Indication: IRRITABLE BOWEL SYNDROME
     Dosage: 2 TIMES DAIL    ORAL
     Route: 048
     Dates: start: 20050801, end: 20050804

REACTIONS (3)
  - ABDOMINAL PAIN UPPER [None]
  - DEHYDRATION [None]
  - DIZZINESS [None]
